FAERS Safety Report 5341685-5 (Version None)
Quarter: 2007Q2

REPORT INFORMATION
  Report Type: 
  Country: None (occurrence: None)
  Receive Date: 20070530
  Receipt Date: 20070516
  Transmission Date: 20071010
  Serious: Yes (Hospitalization)
  Sender: FDA-Public Use
  Company Number: 156470ISR

PATIENT
  Sex: Female

DRUGS (1)
  1. TORSEMIDE [Suspect]

REACTIONS (1)
  - PANCREATITIS ACUTE [None]
